FAERS Safety Report 6839749-X (Version None)
Quarter: 2010Q3

REPORT INFORMATION
  Report Type: 
  Country: None (occurrence: None)
  Receive Date: 20100714
  Receipt Date: 20100709
  Transmission Date: 20110219
  Serious: Yes (Death, Life-Threatening, Hospitalization)
  Sender: FDA-Public Use
  Company Number: JP-NOVOPROD-310410

PATIENT
  Age: 84 Year
  Sex: Male
  Weight: 54 kg

DRUGS (11)
  1. NOVORAPID 30 MIX CHU FLEXPEN [Suspect]
     Indication: TYPE 2 DIABETES MELLITUS
     Dosage: 15 -18U, QD
     Route: 058
     Dates: start: 20100611, end: 20100617
  2. ASPIRIN [Suspect]
     Indication: ATRIAL FIBRILLATION
     Dosage: 100 MG, QD
     Route: 048
     Dates: start: 20100519, end: 20100617
  3. BLOPRESS [Suspect]
     Indication: HYPERTENSION
     Dosage: 4 MG, QD
     Route: 048
     Dates: start: 20100520, end: 20100617
  4. ARTIST [Suspect]
     Indication: ATRIAL FIBRILLATION
     Dosage: 5 MG, QD
     Route: 048
     Dates: start: 20100519, end: 20100617
  5. HUMALOG MIX 50 [Concomitant]
     Indication: TYPE 2 DIABETES MELLITUS
     Dosage: 18-19U, QD
     Route: 058
     Dates: start: 20100604, end: 20100610
  6. FLUITRAN [Concomitant]
     Indication: DIABETIC NEPHROPATHY
     Dosage: 2 MG, QD
     Route: 048
     Dates: start: 20080211, end: 20100617
  7. CONIEL [Concomitant]
     Indication: HYPERTENSION
     Dosage: 8 MG, QD
     Route: 048
     Dates: start: 20090706, end: 20100617
  8. TAKEPRON [Concomitant]
     Indication: GASTRIC ULCER SURGERY
     Dosage: 15 MG, QD
     Route: 048
     Dates: end: 20100617
  9. KETAS [Concomitant]
     Indication: CEREBRAL HAEMORRHAGE
     Dosage: 10 MG, QD
     Route: 048
     Dates: end: 20100617
  10. EPOGIN [Concomitant]
     Indication: NEPHROGENIC ANAEMIA
     Dosage: 6000 U, UNK
     Route: 058
     Dates: start: 20081124
  11. PREDNISOLONE [Concomitant]
     Dosage: 20 MG, BID
     Dates: start: 20100617

REACTIONS (2)
  - CEREBRAL INFARCTION [None]
  - PLATELET COUNT DECREASED [None]
